APPROVED DRUG PRODUCT: ENFLURANE
Active Ingredient: ENFLURANE
Strength: 99.9%
Dosage Form/Route: LIQUID;INHALATION
Application: A074396 | Product #001
Applicant: PIRAMAL CRITICAL CARE INC
Approved: Jul 29, 1994 | RLD: No | RS: No | Type: DISCN